FAERS Safety Report 7881186-3 (Version None)
Quarter: 2011Q4

REPORT INFORMATION
  Report Type: 
  Country: None (occurrence: None)
  Receive Date: 20111101
  Receipt Date: 20110525
  Transmission Date: 20120403
  Serious: Yes (Other)
  Sender: FDA-Public Use
  Company Number: US-AMGEN-QUU307380

PATIENT
  Age: 46 Year
  Sex: Female
  Weight: 72.6 kg

DRUGS (2)
  1. ENBREL [Suspect]
     Indication: PSORIASIS
     Dosage: 50 MG, 2 TIMES/WK
     Route: 058
     Dates: start: 20040315, end: 20080530
  2. ENBREL [Suspect]
     Dates: start: 20040501

REACTIONS (11)
  - PLEURAL EFFUSION [None]
  - ARRHYTHMIA [None]
  - ATELECTASIS [None]
  - HYPERTENSION [None]
  - DIFFUSE LARGE B-CELL LYMPHOMA [None]
  - FLUID RETENTION [None]
  - INSOMNIA [None]
  - NEUROPATHY PERIPHERAL [None]
  - CARDIAC FAILURE CONGESTIVE [None]
  - ANXIETY [None]
  - PERICARDIAL EFFUSION [None]
